FAERS Safety Report 5897035-9 (Version None)
Quarter: 2008Q3

REPORT INFORMATION
  Report Type: 
  Country: None (occurrence: None)
  Receive Date: 20080923
  Receipt Date: 20080915
  Transmission Date: 20090109
  Serious: Yes (Other)
  Sender: FDA-Public Use
  Company Number: 800106235-AKO-4938AE

PATIENT
  Age: 70 Year
  Sex: Female

DRUGS (1)
  1. AKWA TEARS OPHTHALMIC OINTMENT, AKORN [Suspect]
     Indication: EYE OPERATION
     Dosage: TOPICAL
     Route: 061
     Dates: start: 20080815

REACTIONS (2)
  - CHEMICAL BURNS OF EYE [None]
  - PHARMACEUTICAL PRODUCT COMPLAINT [None]
